FAERS Safety Report 6303297-6 (Version None)
Quarter: 2009Q3

REPORT INFORMATION
  Report Type: 
  Country: None (occurrence: None)
  Receive Date: 20090810
  Receipt Date: 20090608
  Transmission Date: 20100115
  Serious: Yes (Disabling)
  Sender: FDA-Public Use
  Company Number: A0789396A

PATIENT
  Sex: Female

DRUGS (3)
  1. PAROXETINE HCL [Suspect]
     Dosage: 30MG PER DAY
     Route: 048
     Dates: start: 20090601
  2. PAXIL CR [Suspect]
     Dosage: 25MG PER DAY
     Route: 048
     Dates: start: 20060101, end: 20090101
  3. ORAL CONTRACEPTIVE [Concomitant]

REACTIONS (4)
  - ANXIETY [None]
  - NAUSEA [None]
  - TREMOR [None]
  - WITHDRAWAL SYNDROME [None]
